FAERS Safety Report 4975065-9 (Version None)
Quarter: 2006Q2

REPORT INFORMATION
  Report Type: 
  Country: None (occurrence: None)
  Receive Date: 20060418
  Receipt Date: 20060406
  Transmission Date: 20061013
  Serious: Yes (Other)
  Sender: FDA-Public Use
  Company Number: US-ROCHE-443764

PATIENT
  Age: 70 Year
  Sex: Female

DRUGS (5)
  1. BUMEX [Suspect]
     Dosage: STRENGTH + FORMULATION REPORTED AS 1-2 MG.  INDICATION REPORTED AS CHF/EDEMA OF LEGS.
     Route: 048
     Dates: start: 20050315
  2. BUMEX [Suspect]
     Dosage: DECREASED DOSE.
     Route: 048
  3. BENADRYL [Concomitant]
     Route: 048
  4. REGLAN [Concomitant]
     Route: 048
  5. INSULIN [Concomitant]
     Route: 058

REACTIONS (5)
  - BLOOD VISCOSITY INCREASED [None]
  - EOSINOPHILIA [None]
  - GOUT [None]
  - PULMONARY FIBROSIS [None]
  - RASH [None]
